FAERS Safety Report 5883047-8 (Version None)
Quarter: 2008Q3

REPORT INFORMATION
  Report Type: 
  Country: None (occurrence: None)
  Receive Date: 20080913
  Receipt Date: 20080827
  Transmission Date: 20090109
  Serious: No
  Sender: FDA-Public Use
  Company Number: US-ABBOTT-08P-163-0472729-00

PATIENT
  Sex: Female

DRUGS (5)
  1. HUMIRA [Suspect]
     Indication: CROHN'S DISEASE
     Dates: start: 20080801
  2. BALSALAZIDE DISODIUM [Concomitant]
     Indication: CROHN'S DISEASE
  3. BALSALAZIDE DISODIUM [Concomitant]
     Dosage: 3 PILLS, 3 IN 1 D
     Route: 048
     Dates: start: 20080827
  4. LIBRAX [Concomitant]
     Indication: CROHN'S DISEASE
  5. LIBRAX [Concomitant]
     Dosage: 1PILL, 2 IN 1 D
     Route: 048
     Dates: start: 20080827

REACTIONS (2)
  - DIARRHOEA [None]
  - PAIN [None]
